FAERS Safety Report 5616403-3 (Version None)
Quarter: 2008Q1

REPORT INFORMATION
  Report Type: 
  Country: None (occurrence: None)
  Receive Date: 20080207
  Receipt Date: 20080128
  Transmission Date: 20080703
  Serious: Yes (Other)
  Sender: FDA-Public Use
  Company Number: US-BAYER-200812427NA

PATIENT
  Sex: Female

DRUGS (1)
  1. MIRENA [Suspect]
     Dates: start: 20071030, end: 20080122

REACTIONS (1)
  - PELVIC INFLAMMATORY DISEASE [None]
